FAERS Safety Report 13071970 (Version 1)
Quarter: 2016Q4

REPORT INFORMATION
  Report Type: Spontaneous
  Country: US (occurrence: US)
  Receive Date: 20161228
  Receipt Date: 20161228
  Transmission Date: 20170207
  Serious: No
  Sender: FDA-Public Use
  Company Number: None

PATIENT
  Age: 51 Year
  Sex: Male
  Weight: 88 kg

DRUGS (2)
  1. WELLBUTRIN [Concomitant]
     Active Substance: BUPROPION HYDROCHLORIDE
  2. FLUOROURACIL CREAM [Suspect]
     Active Substance: FLUOROURACIL
     Indication: ACTINIC KERATOSIS
     Route: 061
     Dates: start: 20161130, end: 20161224

REACTIONS (7)
  - Dyspnoea [None]
  - Confusional state [None]
  - Skin irritation [None]
  - Amnesia [None]
  - Chills [None]
  - Erythema [None]
  - Oropharyngeal pain [None]

NARRATIVE: CASE EVENT DATE: 20161224
